FAERS Safety Report 9678455 (Version 1)
Quarter: 2013Q4

REPORT INFORMATION
  Report Type: Spontaneous
  Country: AT (occurrence: AT)
  Receive Date: 20131108
  Receipt Date: 20131108
  Transmission Date: 20140711
  Serious: Yes (Other)
  Sender: FDA-Public Use
  Company Number: AT-BRISTOL-MYERS SQUIBB COMPANY-19720598

PATIENT
  Age: 24 Year
  Sex: Female

DRUGS (4)
  1. ABILIFY [Suspect]
     Dosage: 03-07JUL13:10MG?08-09JUL13:20MG?10-15JUL13:30MG
     Dates: start: 20130703, end: 20130715
  2. TRITTICO [Suspect]
     Dates: start: 20130606, end: 20130715
  3. TEMESTA [Concomitant]
     Dosage: 26JUN-02JUL:2.5MG,?15-23JUN:5MG?13JUN13:7.5MG?13JUN13-ONG;50MG?14JUN13:6.25MG?24-25JUN13:3.75MG
     Dates: start: 20130605
  4. RISPERIDAL [Concomitant]
     Dosage: 06JUN13,15JUN-09JUL:6MG?07-14JUN13:8MG?10-15JUL13:4MG
     Dates: start: 20130606

REACTIONS (1)
  - Periorbital oedema [Recovered/Resolved]
